FAERS Safety Report 23752286 (Version 1)
Quarter: 2024Q2

REPORT INFORMATION
  Report Type: Spontaneous
  Country: RO (occurrence: RO)
  Receive Date: 20240417
  Receipt Date: 20240417
  Transmission Date: 20240715
  Serious: Yes (Other)
  Sender: FDA-Public Use
  Company Number: RO-ELI_LILLY_AND_COMPANY-RO202404005408

PATIENT
  Age: 66 Year
  Sex: Female

DRUGS (4)
  1. ABEMACICLIB [Suspect]
     Active Substance: ABEMACICLIB
     Indication: Breast cancer
     Dosage: 150 MG, BID (150 MG 1 CP EVERY 12 HOURS)
     Route: 065
     Dates: start: 202207, end: 202209
  2. ABEMACICLIB [Suspect]
     Active Substance: ABEMACICLIB
     Dosage: 150 MG, BID (150 MG 1 CP EVERY 12 HOURS)
     Route: 065
  3. LETROZOLE [Concomitant]
     Active Substance: LETROZOLE
     Indication: Breast cancer
     Dosage: 2.5 MG, OTHER (1 CP/DAY)
     Dates: start: 202207
  4. DENOSUMAB [Concomitant]
     Active Substance: DENOSUMAB
     Indication: Breast cancer
     Dosage: 120 MG, OTHER (EVERY 28 DAYS)

REACTIONS (6)
  - Appendicitis [Unknown]
  - Intestinal obstruction [Unknown]
  - Postoperative adhesion [Unknown]
  - Abdominal distension [Unknown]
  - Neutropenia [Unknown]
  - Anaemia [Unknown]
